FAERS Safety Report 7076795-8 (Version None)
Quarter: 2010Q4

REPORT INFORMATION
  Report Type: 
  Country: None (occurrence: None)
  Receive Date: 20101029
  Receipt Date: 20101029
  Transmission Date: 20110411
  Serious: Yes (Life-Threatening)
  Sender: FDA-Public Use
  Company Number: None

PATIENT
  Age: 77 Year
  Sex: Male
  Weight: 74.8435 kg

DRUGS (1)
  1. ZOLPIDEM [Suspect]
     Indication: INSOMNIA
     Dosage: 10 MG 1 PILL EVERY MONTH OR WHEN NEEDED
     Dates: start: 20100723

REACTIONS (2)
  - PRODUCT SUBSTITUTION ISSUE [None]
  - SOMNAMBULISM [None]
